FAERS Safety Report 7630348-9 (Version None)
Quarter: 2011Q3

REPORT INFORMATION
  Report Type: 
  Country: None (occurrence: None)
  Receive Date: 20110722
  Receipt Date: 20110713
  Transmission Date: 20111222
  Serious: Yes (Hospitalization)
  Sender: FDA-Public Use
  Company Number: FR-BAYER-2011-061970

PATIENT
  Age: 68 Year
  Sex: Male

DRUGS (4)
  1. AUGMENTIN '125' [Suspect]
     Indication: HYPERTHERMIA
     Dosage: UNK
     Route: 048
     Dates: start: 20090905, end: 20090908
  2. CIPROFLOXACIN [Suspect]
     Indication: FEBRILE NEUTROPENIA
     Dosage: UNK
     Route: 042
     Dates: start: 20090909, end: 20090919
  3. AZACTAM [Suspect]
     Indication: FEBRILE NEUTROPENIA
     Dosage: UNK
     Route: 042
     Dates: start: 20090909, end: 20090919
  4. AUGMENTIN '125' [Suspect]
     Indication: FEBRILE NEUTROPENIA

REACTIONS (2)
  - FEBRILE NEUTROPENIA [None]
  - RENAL FAILURE ACUTE [None]
